FAERS Safety Report 7126729-2 (Version None)
Quarter: 2010Q4

REPORT INFORMATION
  Report Type: 
  Country: None (occurrence: None)
  Receive Date: 20101129
  Receipt Date: 20101125
  Transmission Date: 20110411
  Serious: Yes (Death, Other)
  Sender: FDA-Public Use
  Company Number: PHHY2010DE07748

PATIENT
  Sex: Male

DRUGS (1)
  1. GLIVEC [Suspect]
     Dosage: 400 MG/DAY
     Route: 048
     Dates: start: 20010823, end: 20100201

REACTIONS (5)
  - LUNG ADENOCARCINOMA [None]
  - MALIGNANT PERITONEAL NEOPLASM [None]
  - METASTASES TO ADRENALS [None]
  - METASTASES TO CENTRAL NERVOUS SYSTEM [None]
  - NON-SMALL CELL LUNG CANCER STAGE IV [None]
